FAERS Safety Report 7850902-9 (Version None)
Quarter: 2011Q4

REPORT INFORMATION
  Report Type: 
  Country: None (occurrence: None)
  Receive Date: 20111021
  Receipt Date: 20111010
  Transmission Date: 20120403
  Serious: Yes (Other)
  Sender: FDA-Public Use
  Company Number: 1070393

PATIENT
  Age: 62 Year
  Sex: Female
  Weight: 66 kg

DRUGS (4)
  1. BENADRYL [Concomitant]
  2. CARBOPLATIN [Suspect]
     Indication: PRODUCT USED FOR UNKNOWN INDICATION
     Dosage: 632.0MG, 1 EVERY 3 WEEKS
  3. ZOFRAN [Concomitant]
  4. (DEXAMETHASONE) [Concomitant]

REACTIONS (3)
  - NAUSEA [None]
  - FLUSHING [None]
  - PRURITUS [None]
